FAERS Safety Report 5211140-1 (Version None)
Quarter: 2006Q4

REPORT INFORMATION
  Report Type: 
  Country: None (occurrence: None)
  Receive Date: 20061114
  Receipt Date: 20061011
  Transmission Date: 20070319
  Serious: No
  Sender: FDA-Public Use
  Company Number: S06-USA-04243-01

PATIENT
  Age: 72 Year
  Sex: Male

DRUGS (11)
  1. NAMENDA [Suspect]
     Indication: APHASIA
     Dosage: 5 MG PO
     Route: 048
     Dates: start: 20061007
  2. ARICEPT [Concomitant]
  3. ALTACE [Concomitant]
  4. ASPIRIN [Concomitant]
  5. ATENOLOL [Concomitant]
  6. CITALOPRAM HYDROBROMIDE [Concomitant]
  7. XALATAN [Concomitant]
  8. ZOCOR [Concomitant]
  9. ZYRTEC [Concomitant]
  10. VITAMINS NOS [Concomitant]
  11. FISH OIL [Concomitant]

REACTIONS (1)
  - CHROMATURIA [None]
